FAERS Safety Report 9513466 (Version 1)
Quarter: 2013Q3

REPORT INFORMATION
  Report Type: Spontaneous
  Country: US (occurrence: US)
  Receive Date: 20130910
  Receipt Date: 20130910
  Transmission Date: 20140515
  Serious: No
  Sender: FDA-Public Use
  Company Number: US-TARO-2013P1003515

PATIENT
  Age: 81 Year
  Sex: Male
  Weight: 100.7 kg

DRUGS (19)
  1. WARFARIN SODIUM TABLETS USP 5MG [Suspect]
     Indication: ATRIAL FIBRILLATION
     Route: 048
     Dates: start: 2003
  2. WARFARIN SODIUM TABLETS USP 5MG [Suspect]
     Indication: ATRIAL FIBRILLATION
     Route: 048
     Dates: start: 2003
  3. TYLENOL [Concomitant]
  4. CALCIUM + D [Concomitant]
  5. CARBI-LEVODOPA (SINEMET) 25/100 [Concomitant]
  6. CARBI-LEVODOPA 50/200 MG [Concomitant]
  7. ^CLONAPAM^ [Concomitant]
  8. VITAMIN B12 [Concomitant]
  9. FOLEX [Concomitant]
  10. FINASTERIDE [Concomitant]
  11. FUROSEMIDE [Concomitant]
  12. LISINOPRIL [Concomitant]
  13. METOPROLOL CASEINATE [Concomitant]
  14. MULTIVITAMIN [Concomitant]
  15. FISH OIL [Concomitant]
  16. POTASSIUM CHLORIDE [Concomitant]
  17. VESICARE [Concomitant]
  18. TAMSULOSIN [Concomitant]
  19. FOLIC ACID [Concomitant]

REACTIONS (1)
  - International normalised ratio decreased [Not Recovered/Not Resolved]
